FAERS Safety Report 23774546 (Version 3)
Quarter: 2024Q2

REPORT INFORMATION
  Report Type: Spontaneous
  Country: US (occurrence: US)
  Receive Date: 20240423
  Receipt Date: 20240527
  Transmission Date: 20240716
  Serious: Yes (Hospitalization, Other)
  Sender: FDA-Public Use
  Company Number: US-BRISTOL-MYERS SQUIBB COMPANY-2024-061659

PATIENT
  Age: 63 Year
  Sex: Female

DRUGS (1)
  1. ONUREG [Suspect]
     Active Substance: AZACITIDINE
     Indication: Product used for unknown indication
     Dosage: FREQUENCY: TAKE ONE TABLET BY MOUTH ONCE DAILY FOR 14 DAYS ON AND 14 DAYS OFF. TAKE WITH WATER AT TH
     Route: 048

REACTIONS (1)
  - Leukaemia recurrent [Unknown]
